FAERS Safety Report 15484007 (Version 1)
Quarter: 2018Q4

REPORT INFORMATION
  Report Type: Spontaneous
  Country: GB (occurrence: GB)
  Receive Date: 20181010
  Receipt Date: 20181010
  Transmission Date: 20190205
  Serious: Yes (Other)
  Sender: FDA-Public Use
  Company Number: GB-MYLANLABS-2018M1074437

PATIENT

DRUGS (1)
  1. LIDOCAINE. [Suspect]
     Active Substance: LIDOCAINE
     Indication: FRACTURE PAIN
     Dosage: UNK
     Route: 061

REACTIONS (3)
  - Off label use [Unknown]
  - Constipation [Unknown]
  - Delirium [Unknown]
